FAERS Safety Report 11704661 (Version 3)
Quarter: 2016Q1

REPORT INFORMATION
  Report Type: Report from Study
  Country: FR (occurrence: FR)
  Receive Date: 20151106
  Receipt Date: 20160112
  Transmission Date: 20160525
  Serious: Yes (Hospitalization)
  Sender: FDA-Public Use
  Company Number: PHHO2015FR018605

PATIENT
  Age: 79 Year
  Sex: Male
  Weight: 75 kg

DRUGS (2)
  1. AZACITIDINE. [Suspect]
     Active Substance: AZACITIDINE
     Indication: MYELODYSPLASTIC SYNDROME
     Dosage: 150 MG, QD
     Route: 058
     Dates: start: 20151009, end: 20151015
  2. LDE 225 [Suspect]
     Active Substance: ERISMODEGIB
     Indication: MYELODYSPLASTIC SYNDROME
     Dosage: 800 MG, QD
     Route: 048
     Dates: start: 20151009, end: 20151021

REACTIONS (2)
  - Renal failure [Not Recovered/Not Resolved]
  - Rhabdomyolysis [Not Recovered/Not Resolved]

NARRATIVE: CASE EVENT DATE: 20151022
